FAERS Safety Report 9420882 (Version 1)
Quarter: 2013Q3

REPORT INFORMATION
  Report Type: Spontaneous
  Country: DE (occurrence: None)
  Receive Date: 20130723
  Receipt Date: 20130723
  Transmission Date: 20140515
  Serious: Yes (Hospitalization, Other)
  Sender: FDA-Public Use
  Company Number: 7223736

PATIENT
  Sex: Female

DRUGS (1)
  1. NOVOTHYRAL [Suspect]
     Indication: HYPERTHYROIDISM
     Route: 048
     Dates: start: 2011, end: 20130624

REACTIONS (9)
  - Hypertension [None]
  - Agitation [None]
  - Fatigue [None]
  - Atrial flutter [None]
  - Drug withdrawal syndrome [None]
  - Insomnia [None]
  - Tremor [None]
  - Palpitations [None]
  - Diarrhoea [None]
